FAERS Safety Report 5501060-7 (Version None)
Quarter: 2007Q4

REPORT INFORMATION
  Report Type: 
  Country: None (occurrence: None)
  Receive Date: 20071029
  Receipt Date: 20071016
  Transmission Date: 20080405
  Serious: Yes (Other)
  Sender: FDA-Public Use
  Company Number: AU-PFIZER INC-2007089743

PATIENT
  Sex: Male

DRUGS (6)
  1. NICOTINE [Suspect]
     Indication: SMOKING CESSATION THERAPY
     Dosage: DAILY DOSE:10MG-FREQ:AS NEEDED
     Route: 055
  2. IMDUR [Concomitant]
  3. NORVASC [Concomitant]
  4. KARVEA [Concomitant]
  5. LOSEC [Concomitant]
  6. CARTIA XT [Concomitant]
     Dosage: DAILY DOSE:100MG

REACTIONS (5)
  - DEHYDRATION [None]
  - EATING DISORDER [None]
  - HICCUPS [None]
  - OVERDOSE [None]
  - VOMITING [None]
